FAERS Safety Report 9002179 (Version 1)
Quarter: 2013Q1

REPORT INFORMATION
  Report Type: Spontaneous
  Country: US (occurrence: None)
  Receive Date: 20130103
  Receipt Date: 20130103
  Transmission Date: 20140127
  Serious: No
  Sender: FDA-Public Use
  Company Number: None

PATIENT
  Age: 76 Year
  Sex: Male
  Weight: 77.9 kg

DRUGS (2)
  1. DOXAZOSIN [Suspect]
     Indication: BENIGN PROSTATIC HYPERPLASIA
     Dosage: 4 MG  AT BEDTIME  PO
     Route: 048
     Dates: start: 20110505, end: 20111107
  2. DOXAZOSIN [Suspect]
     Dosage: 4 MG   AT BEDTIME   PO
     Route: 048
     Dates: start: 20110505, end: 20111107

REACTIONS (1)
  - Treatment failure [None]
